FAERS Safety Report 5008322-0 (Version None)
Quarter: 2006Q2

REPORT INFORMATION
  Report Type: 
  Country: None (occurrence: None)
  Receive Date: 20060523
  Receipt Date: 20060410
  Transmission Date: 20061013
  Serious: Yes (Hospitalization)
  Sender: FDA-Public Use
  Company Number: JP-BRISTOL-MYERS SQUIBB COMPANY-13343686

PATIENT
  Age: 55 Year
  Sex: Male

DRUGS (5)
  1. TAXOL [Suspect]
     Indication: GASTRIC CANCER
     Route: 041
     Dates: start: 20060131, end: 20060131
  2. GASTER [Concomitant]
     Route: 042
     Dates: start: 20050415, end: 20060131
  3. NASEA [Concomitant]
     Route: 042
     Dates: start: 20050415, end: 20060131
  4. DECADRON SRC [Concomitant]
     Route: 042
     Dates: start: 20050415, end: 20060131
  5. POLARAMINE [Concomitant]
     Route: 042
     Dates: start: 20050415, end: 20060131

REACTIONS (4)
  - BONE MARROW FAILURE [None]
  - ILEUS [None]
  - JAUNDICE CHOLESTATIC [None]
  - MALIGNANT ASCITES [None]
